FAERS Safety Report 4529621-2 (Version None)
Quarter: 2004Q4

REPORT INFORMATION
  Report Type: 
  Country: None (occurrence: None)
  Receive Date: 20041214
  Receipt Date: 20041203
  Transmission Date: 20050328
  Serious: Yes (Death, Hospitalization)
  Sender: FDA-Public Use
  Company Number: FABR-10813

PATIENT
  Age: 36 Year
  Sex: Male
  Weight: 60.3284 kg

DRUGS (8)
  1. FABRAZYME [Suspect]
     Indication: FABRY'S DISEASE
     Dosage: 70 MG Q2WKS IV
     Route: 042
     Dates: start: 20030618, end: 20041006
  2. SINGULAIR [Concomitant]
  3. ALBUTEROL [Concomitant]
  4. ADVAIR DISKUS 100/50 [Concomitant]
  5. ULTRAM [Concomitant]
  6. FERROUS SULFATE TAB [Concomitant]
  7. ZOLOFT [Concomitant]
  8. DEMEROL [Concomitant]

REACTIONS (5)
  - CARDIAC DISORDER [None]
  - CORONARY ARTERY ATHEROSCLEROSIS [None]
  - DILATATION VENTRICULAR [None]
  - URINARY RETENTION [None]
  - VENTRICULAR HYPERTROPHY [None]
